FAERS Safety Report 15346877 (Version 1)
Quarter: 2018Q3

REPORT INFORMATION
  Report Type: Spontaneous
  Country: US (occurrence: US)
  Receive Date: 20180828
  Receipt Date: 20180828
  Transmission Date: 20181010
  Serious: Yes (Other)
  Sender: FDA-Public Use
  Company Number: None

PATIENT
  Age: 53 Year
  Sex: Female
  Weight: 99 kg

DRUGS (2)
  1. TRICHLOROACETIC ACID [Suspect]
     Active Substance: TRICHLOROACETIC ACID
     Indication: ACROCHORDON EXCISION
     Dosage: ?          QUANTITY:1 DROP(S);OTHER FREQUENCY:1X + TEST AREA;?
     Route: 062
     Dates: start: 20180827, end: 20180827
  2. LISINOPRIL. [Concomitant]
     Active Substance: LISINOPRIL

REACTIONS (2)
  - Third degree chemical burn of skin [None]
  - Burn infection [None]

NARRATIVE: CASE EVENT DATE: 20180827
